FAERS Safety Report 11922918 (Version 3)
Quarter: 2017Q3

REPORT INFORMATION
  Report Type: Spontaneous
  Country: US (occurrence: US)
  Receive Date: 20160116
  Receipt Date: 20170809
  Transmission Date: 20171127
  Serious: Yes (Hospitalization, Disabling)
  Sender: FDA-Public Use
  Company Number: US-CELGENEUS-USA-2016012173

PATIENT
  Age: 67 Year
  Sex: Male

DRUGS (4)
  1. THALOMID [Suspect]
     Active Substance: THALIDOMIDE
     Indication: GASTROINTESTINAL HAEMORRHAGE
     Dosage: 100 MILLIGRAM
     Route: 048
     Dates: start: 201506
  2. THALOMID [Suspect]
     Active Substance: THALIDOMIDE
     Indication: ARTERIOVENOUS MALFORMATION
     Dosage: 200 MILLIGRAM
     Route: 048
     Dates: start: 201305
  3. THALOMID [Suspect]
     Active Substance: THALIDOMIDE
     Dosage: 100 MILLIGRAM
     Route: 048
     Dates: start: 20150822
  4. WARFARIN [Concomitant]
     Active Substance: WARFARIN
     Indication: VENTRICULAR ASSIST DEVICE INSERTION
     Route: 065
     Dates: start: 20110611

REACTIONS (1)
  - Medical device site infection [Not Recovered/Not Resolved]

NARRATIVE: CASE EVENT DATE: 20160111
